FAERS Safety Report 6309975-7 (Version None)
Quarter: 2009Q3

REPORT INFORMATION
  Report Type: 
  Country: None (occurrence: None)
  Receive Date: 20090814
  Receipt Date: 20090804
  Transmission Date: 20100115
  Serious: Yes (Hospitalization)
  Sender: FDA-Public Use
  Company Number: NL-B.I. PHARMACEUTICALS,INC./RIDGEFIELD-2009-NL-00412NL

PATIENT
  Sex: Female

DRUGS (11)
  1. SIFROL 0.088MG [Suspect]
     Indication: RESTLESS LEGS SYNDROME
     Dosage: 0.088 MG
  2. ATROVENT [Suspect]
     Dosage: 40 MCG
  3. METFORMIN HCL PCH [Concomitant]
     Dosage: 1000 MG
  4. SERETIDE DISKUS [Concomitant]
     Dosage: 50/250MCG 2DD1
  5. CAFERGOT [Concomitant]
     Dosage: 1 MG
  6. DUSPATAL RETARD [Concomitant]
     Dosage: 200MG PRN
  7. OMEPRAZOL PCH [Concomitant]
     Dosage: 20 MG
  8. SIMVASTATIN PCH [Concomitant]
     Dosage: 40 MG
  9. OXAZEPAM PCH [Concomitant]
     Dosage: 10MG PRN
  10. CODEINE PHOSPHAAT PCH [Concomitant]
     Dosage: 10 MG
  11. PANTOZOL [Concomitant]
     Dosage: 20 MG

REACTIONS (1)
  - DYSKINESIA [None]
